FAERS Safety Report 15857272 (Version 1)
Quarter: 2019Q1

REPORT INFORMATION
  Report Type: Spontaneous
  Country: FI (occurrence: FI)
  Receive Date: 20190123
  Receipt Date: 20190123
  Transmission Date: 20190417
  Serious: Yes (Other)
  Sender: FDA-Public Use
  Company Number: FI-SA-2018SA340518

PATIENT
  Age: 27 Year
  Sex: Male

DRUGS (4)
  1. TREXAN [METHOTREXATE] [Concomitant]
     Dosage: 20 MG, QW
     Dates: start: 201403, end: 20180913
  2. TREXAN [METHOTREXATE] [Concomitant]
     Indication: SERONEGATIVE ARTHRITIS
     Dosage: 15 MG, QW
  3. SALAZOPYRIN [Concomitant]
     Active Substance: SULFASALAZINE
     Indication: SERONEGATIVE ARTHRITIS
     Dosage: 2 DF, BID (2 TABLETS, TWICE PER DAY)
     Dates: start: 201311
  4. KEVZARA [Suspect]
     Active Substance: SARILUMAB
     Indication: SERONEGATIVE ARTHRITIS
     Dosage: 200 MG, QOW
     Route: 058
     Dates: start: 201808, end: 20180913

REACTIONS (2)
  - Leukopenia [Recovered/Resolved]
  - Neutropenia [Recovered/Resolved]

NARRATIVE: CASE EVENT DATE: 2018
